FAERS Safety Report 4526005-8 (Version None)
Quarter: 2004Q4

REPORT INFORMATION
  Report Type: 
  Country: None (occurrence: None)
  Receive Date: 20041213
  Receipt Date: 20041213
  Transmission Date: 20050328
  Serious: No
  Sender: FDA-Public Use
  Company Number: None

PATIENT
  Age: 41 Year
  Sex: Female
  Weight: 69.4003 kg

DRUGS (1)
  1. BEXTRA [Suspect]
     Indication: OSTEOARTHRITIS
     Dosage: 20MG  EVERY DAY  ORAL
     Route: 048
     Dates: start: 20040801, end: 20041211

REACTIONS (3)
  - CHEILITIS [None]
  - MOUTH ULCERATION [None]
  - SKIN DESQUAMATION [None]
